FAERS Safety Report 5753991-0 (Version None)
Quarter: 2008Q2

REPORT INFORMATION
  Report Type: 
  Country: None (occurrence: None)
  Receive Date: 20080527
  Receipt Date: 20080527
  Transmission Date: 20081010
  Serious: Yes (Hospitalization)
  Sender: FDA-Public Use
  Company Number: None

PATIENT
  Age: 16 Year
  Sex: Male
  Weight: 77.1115 kg

DRUGS (1)
  1. SINGULAIR [Suspect]
     Indication: ASTHMA EXERCISE INDUCED
     Dosage: 10 MG 1 X PER DAY AT NIG PO
     Route: 048
     Dates: start: 20030908, end: 20070530

REACTIONS (4)
  - AFFECTIVE DISORDER [None]
  - INITIAL INSOMNIA [None]
  - MENTAL DISORDER [None]
  - SOMNOLENCE [None]
